FAERS Safety Report 5511513-3 (Version None)
Quarter: 2007Q4

REPORT INFORMATION
  Report Type: 
  Country: None (occurrence: None)
  Receive Date: 20071109
  Receipt Date: 20071029
  Transmission Date: 20080405
  Serious: Yes (Life-Threatening, Hospitalization)
  Sender: FDA-Public Use
  Company Number: B0493847A

PATIENT
  Age: 59 Year
  Sex: Male

DRUGS (10)
  1. ZOFRAN [Suspect]
     Dosage: 8MG CYCLIC
     Route: 042
     Dates: start: 20070723, end: 20070903
  2. SOLU-MEDROL [Suspect]
     Dosage: 40MG CYCLIC
     Route: 042
     Dates: start: 20070723, end: 20070903
  3. CAMPTOSAR [Concomitant]
     Route: 042
     Dates: start: 20070723
  4. CETUXIMAB [Concomitant]
     Route: 042
     Dates: start: 20070723
  5. MONOCLONAL ANTIBODY [Concomitant]
     Route: 065
     Dates: start: 20070820, end: 20070820
  6. DURAGESIC-100 [Concomitant]
     Dosage: 25MCG PER DAY
     Route: 065
  7. PROPOFAN [Concomitant]
     Dosage: 2UNIT PER DAY
     Route: 065
  8. PRIMPERAN INJ [Concomitant]
     Dosage: 2TAB AS REQUIRED
     Route: 048
  9. IMOVANE [Concomitant]
     Route: 065
  10. LANSOYL [Concomitant]
     Dosage: 2SP PER DAY
     Route: 048

REACTIONS (12)
  - ASTHENIA [None]
  - DYSPNOEA [None]
  - ERYTHEMA [None]
  - FEELING HOT [None]
  - HYPERHIDROSIS [None]
  - HYPERSENSITIVITY [None]
  - HYPOTENSION [None]
  - LOSS OF CONSCIOUSNESS [None]
  - MALAISE [None]
  - OXYGEN SATURATION DECREASED [None]
  - PARAESTHESIA [None]
  - PRURITUS [None]
